FAERS Safety Report 15952812 (Version 1)
Quarter: 2019Q1

REPORT INFORMATION
  Report Type: Spontaneous
  Country: US (occurrence: US)
  Receive Date: 20190212
  Receipt Date: 20190212
  Transmission Date: 20190417
  Serious: Yes (Other)
  Sender: FDA-Public Use
  Company Number: US-PFIZER INC-2019055379

PATIENT

DRUGS (1)
  1. PIROXICAM. [Suspect]
     Active Substance: PIROXICAM
     Dosage: UNK

REACTIONS (13)
  - Anxiety [Unknown]
  - Muscle spasms [Unknown]
  - Excessive cerumen production [Unknown]
  - Pain in extremity [Unknown]
  - Chest pain [Unknown]
  - Back disorder [Unknown]
  - Tinea pedis [Unknown]
  - Ear disorder [Unknown]
  - Pruritus [Unknown]
  - Hepatitis C [Unknown]
  - Pain in jaw [Unknown]
  - Hernia [Unknown]
  - Gastric disorder [Unknown]
